FAERS Safety Report 7993367-9 (Version None)
Quarter: 2011Q4

REPORT INFORMATION
  Report Type: 
  Country: None (occurrence: None)
  Receive Date: 20111219
  Receipt Date: 20110506
  Transmission Date: 20120403
  Serious: No
  Sender: FDA-Public Use
  Company Number: US-ASTRAZENECA-2011SE26869

PATIENT
  Age: 55 Year
  Sex: Female
  Weight: 45.8 kg

DRUGS (3)
  1. TOPROL-XL [Concomitant]
  2. CRESTOR [Suspect]
     Route: 048
     Dates: start: 20110501, end: 20110501
  3. DIOVAN [Concomitant]

REACTIONS (3)
  - CHEST DISCOMFORT [None]
  - ABDOMINAL DISCOMFORT [None]
  - PARAESTHESIA [None]
